FAERS Safety Report 12226252 (Version 5)
Quarter: 2018Q2

REPORT INFORMATION
  Report Type: Spontaneous
  Country: BR (occurrence: BR)
  Receive Date: 20160331
  Receipt Date: 20180419
  Transmission Date: 20180711
  Serious: Yes (Death, Hospitalization, Other)
  Sender: FDA-Public Use
  Company Number: BR-ALEXION PHARMACEUTICALS INC-A201602214

PATIENT
  Age: 46 Year
  Sex: Female

DRUGS (2)
  1. SOLIRIS [Suspect]
     Active Substance: ECULIZUMAB
     Dosage: UNK
     Route: 065
     Dates: start: 20150713
  2. SOLIRIS [Suspect]
     Active Substance: ECULIZUMAB
     Indication: ATYPICAL HAEMOLYTIC URAEMIC SYNDROME
     Dosage: 1200 MG, EVERY 15 DAYS
     Route: 042
     Dates: start: 20150713, end: 201603

REACTIONS (8)
  - Cytomegalovirus test positive [Not Recovered/Not Resolved]
  - Myiasis [Unknown]
  - Sepsis [Fatal]
  - Ischaemic skin ulcer [Unknown]
  - Wound infection bacterial [Not Recovered/Not Resolved]
  - Haemodynamic instability [Unknown]
  - Cardio-respiratory arrest [Fatal]
  - Pulmonary oedema [Not Recovered/Not Resolved]

NARRATIVE: CASE EVENT DATE: 201511
